FAERS Safety Report 9068908 (Version 1)
Quarter: 2013Q1

REPORT INFORMATION
  Report Type: Spontaneous
  Country: US (occurrence: None)
  Receive Date: 20130213
  Receipt Date: 20130213
  Transmission Date: 20140127
  Serious: Yes (Other)
  Sender: FDA-Public Use
  Company Number: None

PATIENT
  Age: 25 Month
  Sex: Male
  Weight: 14.52 kg

DRUGS (2)
  1. FLOVENTHFA HFA [Suspect]
     Indication: BRONCHIOLITIS
     Route: 055
     Dates: start: 20130209, end: 20130209
  2. VENTOLINHFA HFA [Suspect]
     Route: 055
     Dates: start: 20130209, end: 20130209

REACTIONS (2)
  - Hypersensitivity [None]
  - Angioedema [None]
